FAERS Safety Report 16809658 (Version 1)
Quarter: 2019Q3

REPORT INFORMATION
  Report Type: Report from Study
  Country: MX (occurrence: MX)
  Receive Date: 20190916
  Receipt Date: 20190916
  Transmission Date: 20191005
  Serious: Yes (Hospitalization)
  Sender: FDA-Public Use
  Company Number: MX-AMGEN-MEXSL2019149760

PATIENT
  Age: 68 Year
  Sex: Male

DRUGS (1)
  1. VECTIBIX [Suspect]
     Active Substance: PANITUMUMAB
     Indication: COLON CANCER
     Dosage: 400 MILLIGRAM, (EVERY 15 DAYS)
     Route: 065

REACTIONS (5)
  - Mouth ulceration [Unknown]
  - Pyrexia [Unknown]
  - Skin ulcer [Unknown]
  - Pharyngeal ulceration [Unknown]
  - Acne [Not Recovered/Not Resolved]
